FAERS Safety Report 5709397-3 (Version None)
Quarter: 2008Q2

REPORT INFORMATION
  Report Type: 
  Country: None (occurrence: None)
  Receive Date: 20080417
  Receipt Date: 20080408
  Transmission Date: 20081010
  Serious: Yes (Hospitalization)
  Sender: FDA-Public Use
  Company Number: APP200800267

PATIENT
  Age: 6 Year
  Sex: Male

DRUGS (1)
  1. HEPARIN SODIUM INJECTION [Suspect]
     Indication: PERITONEAL DIALYSIS
     Dosage: 500 USP UNITS, 500 UNITS IN 1 L, INTRAPERITONEAL
     Route: 033
     Dates: start: 20080327, end: 20080327

REACTIONS (2)
  - PERITONITIS [None]
  - PHARMACEUTICAL PRODUCT COMPLAINT [None]
